FAERS Safety Report 6114730-7 (Version None)
Quarter: 2009Q1

REPORT INFORMATION
  Report Type: 
  Country: None (occurrence: None)
  Receive Date: 20090313
  Receipt Date: 20090304
  Transmission Date: 20090719
  Serious: Yes (Other)
  Sender: FDA-Public Use
  Company Number: PHHO2009FR03104

PATIENT
  Sex: Male
  Weight: 74.5 kg

DRUGS (1)
  1. STI571/CGP57148B T35717+CAPS [Suspect]
     Indication: GASTROINTESTINAL STROMAL TUMOUR
     Dosage: UNK
     Route: 048
     Dates: start: 20051201

REACTIONS (1)
  - PENIS CARCINOMA [None]
